FAERS Safety Report 16456328 (Version 1)
Quarter: 2019Q2

REPORT INFORMATION
  Report Type: Spontaneous
  Country: SE (occurrence: SE)
  Receive Date: 20190620
  Receipt Date: 20190620
  Transmission Date: 20190711
  Serious: Yes (Hospitalization, Other)
  Sender: FDA-Public Use
  Company Number: SE-PFIZER INC-2019257578

PATIENT
  Age: 54 Year
  Sex: Female

DRUGS (1)
  1. PAMIDRONATE DISODIUM. [Suspect]
     Active Substance: PAMIDRONATE DISODIUM
     Indication: CHRONIC RECURRENT MULTIFOCAL OSTEOMYELITIS
     Dosage: 33 MG, 1X/DAY
     Route: 042
     Dates: start: 20190515, end: 20190517

REACTIONS (1)
  - Infusion site thrombosis [Not Recovered/Not Resolved]

NARRATIVE: CASE EVENT DATE: 20190517
